FAERS Safety Report 4968822-6 (Version None)
Quarter: 2006Q2

REPORT INFORMATION
  Report Type: 
  Country: None (occurrence: None)
  Receive Date: 20060411
  Receipt Date: 20060331
  Transmission Date: 20061013
  Serious: Yes (Hospitalization)
  Sender: FDA-Public Use
  Company Number: BE-GLAXOSMITHKLINE-B0419884A

PATIENT
  Age: 71 Year
  Sex: Male

DRUGS (5)
  1. AVANDIA [Suspect]
     Indication: DIABETES MELLITUS NON-INSULIN-DEPENDENT
     Route: 065
  2. METFORMIN [Concomitant]
     Indication: DIABETES MELLITUS NON-INSULIN-DEPENDENT
     Route: 065
  3. CALCIUM ANTAGONIST [Concomitant]
     Route: 065
  4. CONCURRENT MEDICATIONS [Concomitant]
  5. GLURENORM [Concomitant]
     Route: 065

REACTIONS (1)
  - ACUTE PULMONARY OEDEMA [None]
